FAERS Safety Report 15703115 (Version 1)
Quarter: 2018Q4

REPORT INFORMATION
  Report Type: Other
  Country: ES (occurrence: ES)
  Receive Date: 20181210
  Receipt Date: 20181210
  Transmission Date: 20190205
  Serious: Yes (Hospitalization, Other)
  Sender: FDA-Public Use
  Company Number: ES-APOTEX-2018AP026287

PATIENT
  Age: 85 Year
  Sex: Female

DRUGS (1)
  1. AMOXICILLIN, CLAVULANATE [Suspect]
     Active Substance: AMOXICILLIN\CLAVULANATE POTASSIUM
     Indication: OTITIS MEDIA ACUTE
     Dosage: 1 DF, TID (1-1-1)
     Route: 048
     Dates: start: 20171107, end: 20171113

REACTIONS (1)
  - Hepatitis acute [Recovered/Resolved]

NARRATIVE: CASE EVENT DATE: 20171112
